FAERS Safety Report 7051137-2 (Version None)
Quarter: 2010Q4

REPORT INFORMATION
  Report Type: 
  Country: None (occurrence: None)
  Receive Date: 20101019
  Receipt Date: 20101006
  Transmission Date: 20110411
  Serious: Yes (Other)
  Sender: FDA-Public Use
  Company Number: DE-JNJFOC-20100904052

PATIENT
  Age: 29 Year
  Sex: Female

DRUGS (11)
  1. REMICADE [Suspect]
     Indication: CROHN'S DISEASE
     Route: 042
  2. REMICADE [Suspect]
     Dosage: RESTARTED AFTER DISCONTINUING 1 1/2 YEARS PRIOR
     Route: 042
  3. REMICADE [Suspect]
     Route: 042
  4. PREDNISOLONE [Concomitant]
  5. FOLSAURE [Concomitant]
  6. CLAVERSAL [Concomitant]
  7. MESALAMINE [Concomitant]
     Route: 054
  8. COLIFOAM [Concomitant]
     Route: 054
  9. DEXAMETHASONE [Concomitant]
     Indication: PREMEDICATION
  10. TAVEGYL [Concomitant]
     Indication: PREMEDICATION
  11. ZANTIC [Concomitant]
     Indication: PREMEDICATION

REACTIONS (4)
  - HYPERSENSITIVITY [None]
  - HYPERTENSION [None]
  - INFUSION RELATED REACTION [None]
  - PALPITATIONS [None]
